FAERS Safety Report 9187609 (Version 2)
Quarter: 2013Q2

REPORT INFORMATION
  Report Type: Spontaneous
  Country: JP (occurrence: JP)
  Receive Date: 20130325
  Receipt Date: 20130402
  Transmission Date: 20140414
  Serious: Yes (Death, Life-Threatening)
  Sender: FDA-Public Use
  Company Number: JP-JNJFOC-20130302595

PATIENT
  Age: 74 Year
  Sex: Female

DRUGS (6)
  1. HALOMONTH [Suspect]
     Indication: SCHIZOPHRENIA
     Route: 030
     Dates: start: 20130123
  2. HALOMONTH [Suspect]
     Indication: SCHIZOPHRENIA
     Dosage: 100 MG PER DAY FOR THREE YEARS
     Route: 030
     Dates: start: 20111221
  3. LONASEN [Suspect]
     Indication: SCHIZOPHRENIA
     Dosage: 8X1 PER DAY
     Route: 048
  4. ZYPREXA [Suspect]
     Indication: SCHIZOPHRENIA
     Dosage: 10
     Route: 048
  5. LIPITOR [Concomitant]
     Route: 048
  6. DEPAS [Concomitant]
     Dosage: 10
     Route: 048

REACTIONS (2)
  - Neuroleptic malignant syndrome [Fatal]
  - Disseminated intravascular coagulation [Fatal]
